FAERS Safety Report 22240505 (Version 1)
Quarter: 2023Q2

REPORT INFORMATION
  Report Type: Spontaneous
  Country: US (occurrence: None)
  Receive Date: 20230421
  Receipt Date: 20230421
  Transmission Date: 20230722
  Serious: Yes (Other)
  Sender: FDA-Public Use
  Company Number: None

PATIENT
  Age: 35 Year
  Sex: Female
  Weight: 85.5 kg

DRUGS (3)
  1. BUPRENORPHINE HYDROCHLORIDE [Suspect]
     Active Substance: BUPRENORPHINE HYDROCHLORIDE
     Indication: Drug dependence
     Dosage: OTHER QUANTITY : 3 TABLET(S);?FREQUENCY : DAILY;?
     Route: 060
     Dates: start: 20230330
  2. BUPRENORPHINE HYDROCHLORIDE [Suspect]
     Active Substance: BUPRENORPHINE HYDROCHLORIDE
     Indication: Pain
  3. Ibproferen [Concomitant]

REACTIONS (14)
  - Headache [None]
  - Tremor [None]
  - Palpitations [None]
  - Nausea [None]
  - Feeling of body temperature change [None]
  - Hyperhidrosis [None]
  - Heart rate increased [None]
  - Myalgia [None]
  - Decreased appetite [None]
  - Feeling abnormal [None]
  - Influenza like illness [None]
  - Withdrawal syndrome [None]
  - Product complaint [None]
  - Fear [None]

NARRATIVE: CASE EVENT DATE: 20230330
